FAERS Safety Report 9706538 (Version 5)
Quarter: 2014Q1

REPORT INFORMATION
  Report Type: Report from Study
  Country: IL (occurrence: IL)
  Receive Date: 20131125
  Receipt Date: 20140115
  Transmission Date: 20141002
  Serious: Yes (Hospitalization)
  Sender: FDA-Public Use
  Company Number: IL-ROCHE-1303616

PATIENT
  Age: 63 Year
  Sex: Male

DRUGS (11)
  1. METHOXY POLYETHYLENE GLYCOL-EPOETIN BETA [Suspect]
     Indication: NEPHROGENIC ANAEMIA
     Dosage: LAST DOSE PRIOR TO SAE: 04/SEP/2013
     Route: 042
     Dates: start: 20100301
  2. METHOXY POLYETHYLENE GLYCOL-EPOETIN BETA [Suspect]
     Route: 042
     Dates: start: 20130904
  3. ACETYLSALICYLIC ACID [Concomitant]
     Route: 065
     Dates: start: 20090115
  4. BROTIZOLAM [Concomitant]
     Route: 065
     Dates: start: 20090115
  5. CALCIUM CARBONATE [Concomitant]
     Route: 065
     Dates: start: 20080515
  6. FOLIC ACID [Concomitant]
     Route: 065
     Dates: start: 20080115
  7. ISOSORBIDE DINITRATE [Concomitant]
     Route: 065
     Dates: start: 20120915
  8. SEVELAMER [Concomitant]
     Route: 065
     Dates: start: 20080115
  9. TRIBEMIN [Concomitant]
     Route: 065
     Dates: start: 20090115
  10. ALFACALCIDOL [Concomitant]
     Route: 065
     Dates: start: 20111002
  11. RAMIPRIL [Concomitant]
     Route: 065
     Dates: start: 20130515

REACTIONS (1)
  - Gastritis [Recovered/Resolved]
